FAERS Safety Report 4450461-7 (Version None)
Quarter: 2004Q3

REPORT INFORMATION
  Report Type: 
  Country: None (occurrence: None)
  Receive Date: 20040915
  Receipt Date: 20040906
  Transmission Date: 20050211
  Serious: Yes (Hospitalization)
  Sender: FDA-Public Use
  Company Number: 2004CG01739

PATIENT
  Age: 92 Year
  Sex: Male

DRUGS (5)
  1. ZESTRIL [Suspect]
     Indication: CARDIAC FAILURE
     Dosage: 10 MG DAILY PO
     Route: 048
     Dates: end: 20040725
  2. LASIX [Suspect]
     Dosage: 40 MG DAILY PO
     Route: 048
     Dates: end: 20040725
  3. CARVEDILOL [Suspect]
     Indication: CARDIAC FAILURE
     Dosage: 6.25 MG DAILY PO
     Route: 048
     Dates: start: 20040531, end: 20040725
  4. PREVISCAN [Concomitant]
  5. XANAX [Concomitant]

REACTIONS (12)
  - ARRHYTHMIA [None]
  - ASTHENIA [None]
  - ATRIAL FIBRILLATION [None]
  - BREATH SOUNDS DECREASED [None]
  - DRUG INTERACTION [None]
  - FATIGUE [None]
  - HEART RATE DECREASED [None]
  - HEART SOUNDS ABNORMAL [None]
  - HYPOKALAEMIA [None]
  - HYPONATRAEMIA [None]
  - HYPOTENSION [None]
  - RENAL FAILURE [None]
